FAERS Safety Report 18730457 (Version 1)
Quarter: 2021Q1

REPORT INFORMATION
  Report Type: Spontaneous
  Country: US (occurrence: US)
  Receive Date: 20210112
  Receipt Date: 20210112
  Transmission Date: 20210419
  Serious: Yes (Other)
  Sender: FDA-Public Use
  Company Number: US-AMERICAN REGENT INC-2021000016

PATIENT
  Age: 3 Year
  Sex: Male

DRUGS (6)
  1. SEVOFLURANE. [Concomitant]
     Active Substance: SEVOFLURANE
     Indication: INDUCTION OF ANAESTHESIA
     Dosage: UNK
  2. PROPOFOL. [Concomitant]
     Active Substance: PROPOFOL
     Indication: LARYNGEAL MASK AIRWAY INSERTION
     Dosage: 70 MILLIGRAM
     Route: 065
  3. GLYCOPYRROLATE INJECTION, USP (4601?25) [Suspect]
     Active Substance: GLYCOPYRROLATE
     Indication: BRADYCARDIA
     Dosage: 0.1 MILLIGRAM
     Route: 065
  4. OXYGEN. [Concomitant]
     Active Substance: OXYGEN
     Indication: INDUCTION OF ANAESTHESIA
     Dosage: UNK
  5. DEXMEDETOMIDINE HYDROCHLORIDE INJECTION (0517?0995?25) [Suspect]
     Active Substance: DEXMEDETOMIDINE HYDROCHLORIDE
     Indication: LARYNGEAL MASK AIRWAY INSERTION
     Dosage: 4 MICROGRAM
     Route: 065
  6. NITROUS [Concomitant]
     Active Substance: NITROUS OXIDE
     Indication: INDUCTION OF ANAESTHESIA
     Dosage: UNK

REACTIONS (5)
  - Product use issue [Unknown]
  - Product use in unapproved indication [Unknown]
  - Bradycardia [Recovered/Resolved]
  - Tachycardia [Recovered/Resolved]
  - Hypertension [Recovered/Resolved]
